FAERS Safety Report 19920913 (Version 2)
Quarter: 2021Q4

REPORT INFORMATION
  Report Type: Spontaneous
  Country: FR (occurrence: FR)
  Receive Date: 20211006
  Receipt Date: 20211012
  Transmission Date: 20220303
  Serious: Yes (Other)
  Sender: FDA-Public Use
  Company Number: FR-SA-2021SA325734

PATIENT

DRUGS (4)
  1. ELOCTA [Suspect]
     Active Substance: EFMOROCTOCOG ALFA
     Indication: Haemophilia
  2. ELOCTA [Suspect]
     Active Substance: EFMOROCTOCOG ALFA
     Indication: Haemophilia
  3. ELOCTA [Suspect]
     Active Substance: EFMOROCTOCOG ALFA
     Indication: Haemorrhage prophylaxis
  4. ELOCTA [Suspect]
     Active Substance: EFMOROCTOCOG ALFA
     Indication: Haemorrhage prophylaxis

REACTIONS (1)
  - Haemorrhage [Unknown]
